FAERS Safety Report 4673308-2 (Version None)
Quarter: 2005Q2

REPORT INFORMATION
  Report Type: 
  Country: None (occurrence: None)
  Receive Date: 20050525
  Receipt Date: 20050420
  Transmission Date: 20051028
  Serious: Yes (Hospitalization, Other)
  Sender: FDA-Public Use
  Company Number: MX-BRISTOL-MYERS SQUIBB COMPANY-12941480

PATIENT
  Age: 19 Year
  Sex: Female

DRUGS (3)
  1. ABILIFY [Suspect]
     Indication: MANIA
     Route: 048
     Dates: start: 20050325, end: 20050406
  2. BIPERIDEN HYDROCHLORIDE TAB [Concomitant]
     Dates: start: 20050325
  3. MIDAZOLAM [Concomitant]
     Dates: start: 20050325

REACTIONS (19)
  - AGGRESSION [None]
  - ASPARTATE AMINOTRANSFERASE INCREASED [None]
  - ASTHENIA [None]
  - BACTERIA URINE IDENTIFIED [None]
  - BLOOD CREATINE PHOSPHOKINASE INCREASED [None]
  - BLOOD UREA INCREASED [None]
  - BODY TEMPERATURE INCREASED [None]
  - CATATONIA [None]
  - CONFUSIONAL STATE [None]
  - COORDINATION ABNORMAL [None]
  - DEHYDRATION [None]
  - DEPRESSED LEVEL OF CONSCIOUSNESS [None]
  - GAIT DISTURBANCE [None]
  - HIGH DENSITY LIPOPROTEIN INCREASED [None]
  - JOINT SPRAIN [None]
  - MUSCLE RIGIDITY [None]
  - NEUTROPHIL COUNT INCREASED [None]
  - STUPOR [None]
  - WHITE BLOOD CELL COUNT INCREASED [None]
